FAERS Safety Report 6728629-6 (Version None)
Quarter: 2010Q2

REPORT INFORMATION
  Report Type: 
  Country: None (occurrence: None)
  Receive Date: 20100517
  Receipt Date: 20100504
  Transmission Date: 20101027
  Serious: Yes (Hospitalization, Other)
  Sender: FDA-Public Use
  Company Number: US-ELI_LILLY_AND_COMPANY-US201005000835

PATIENT
  Sex: Female

DRUGS (5)
  1. CYMBALTA [Suspect]
     Dosage: 90 MG, UNK
  2. PLAVIX [Concomitant]
  3. COUMADIN [Concomitant]
  4. CHANTIX                            /05703001/ [Concomitant]
  5. LYRICA [Concomitant]

REACTIONS (13)
  - AMNESIA [None]
  - BLOOD GLUCOSE DECREASED [None]
  - COMA [None]
  - CORONARY ARTERY BYPASS [None]
  - DEEP VEIN THROMBOSIS [None]
  - DIABETES MELLITUS [None]
  - OBSESSIVE-COMPULSIVE DISORDER [None]
  - SPINAL FRACTURE [None]
  - STENT PLACEMENT [None]
  - TOBACCO USER [None]
  - TRANSIENT ISCHAEMIC ATTACK [None]
  - TREMOR [None]
  - VASCULAR GRAFT [None]
